FAERS Safety Report 17832151 (Version 1)
Quarter: 2020Q2

REPORT INFORMATION
  Report Type: Spontaneous
  Country: US (occurrence: US)
  Receive Date: 20200528
  Receipt Date: 20200528
  Transmission Date: 20200714
  Serious: No
  Sender: FDA-Public Use
  Company Number: US-ROCHE-2530605

PATIENT
  Age: 56 Year
  Sex: Female
  Weight: 86.26 kg

DRUGS (3)
  1. ALL OTHER NON-THERAPEUTIC PRODUCTS [Concomitant]
     Active Substance: UNSPECIFIED INGREDIENT
     Indication: SLEEP APNOEA SYNDROME
  2. LEVOTHYROXINE. [Concomitant]
     Active Substance: LEVOTHYROXINE
     Indication: THYROIDECTOMY
  3. OCREVUS [Suspect]
     Active Substance: OCRELIZUMAB
     Indication: SECONDARY PROGRESSIVE MULTIPLE SCLEROSIS
     Dosage: YES
     Route: 042
     Dates: start: 20191227

REACTIONS (4)
  - Arthralgia [Recovering/Resolving]
  - Nasopharyngitis [Not Recovered/Not Resolved]
  - Musculoskeletal pain [Recovering/Resolving]
  - Ill-defined disorder [Recovering/Resolving]

NARRATIVE: CASE EVENT DATE: 20200117
